FAERS Safety Report 5329504-4 (Version None)
Quarter: 2007Q2

REPORT INFORMATION
  Report Type: 
  Country: None (occurrence: None)
  Receive Date: 20070223
  Receipt Date: 20060207
  Transmission Date: 20071010
  Serious: Yes (Life-Threatening, Hospitalization, Disabling)
  Sender: FDA-Public Use
  Company Number: WAES 0602USA01509

PATIENT
  Age: 75 Year
  Sex: Female
  Weight: 74.8435 kg

DRUGS (12)
  1. ZOCOR [Suspect]
     Indication: DIABETES MELLITUS
     Dosage: 80 MG/DAILY/PO
     Route: 048
     Dates: start: 20040101, end: 20051216
  2. ZOCOR [Suspect]
     Indication: HYPERCHOLESTEROLAEMIA
     Dosage: 80 MG/DAILY/PO
     Route: 048
     Dates: start: 20040101, end: 20051216
  3. AVANDIA [Concomitant]
  4. BUMEX [Concomitant]
  5. COUMADIN [Concomitant]
  6. GLUCOPHAGE [Concomitant]
  7. GLUCOTROL [Concomitant]
  8. NORVASC [Concomitant]
  9. PREMARIN [Concomitant]
  10. ZESTRIL [Concomitant]
  11. ZETIA [Concomitant]
  12. ATENOLOL [Concomitant]

REACTIONS (1)
  - RHABDOMYOLYSIS [None]
